FAERS Safety Report 9752159 (Version 1)
Quarter: 2013Q4

REPORT INFORMATION
  Report Type: Spontaneous
  Country: US (occurrence: None)
  Receive Date: 20131211
  Receipt Date: 20131211
  Transmission Date: 20140711
  Serious: Yes (Hospitalization)
  Sender: FDA-Public Use
  Company Number: None

PATIENT
  Age: 76 Year
  Sex: Female
  Weight: 74.84 kg

DRUGS (8)
  1. ELIQUIS [Suspect]
     Indication: ATRIAL FIBRILLATION
     Route: 048
     Dates: start: 20131205, end: 20131209
  2. IBUPROFEN [Concomitant]
  3. SPIRONOLACTONE [Concomitant]
  4. NEBIVOLOL [Concomitant]
  5. TORSEMIDE [Concomitant]
  6. METFORMIN [Concomitant]
  7. GLIPIZIDE [Concomitant]
  8. DIGOXIN [Concomitant]

REACTIONS (3)
  - Gastrointestinal haemorrhage [None]
  - Epistaxis [None]
  - Anaemia [None]
